FAERS Safety Report 8971218 (Version 2)
Quarter: 2013Q1

REPORT INFORMATION
  Report Type: Spontaneous
  Country: IN (occurrence: IN)
  Receive Date: 20121218
  Receipt Date: 20130307
  Transmission Date: 20140127
  Serious: Yes (Other)
  Sender: FDA-Public Use
  Company Number: PHHY2011IN80437

PATIENT
  Age: 58 Year
  Sex: Male
  Weight: 75 kg

DRUGS (3)
  1. TASIGNA [Suspect]
     Indication: CHRONIC MYELOID LEUKAEMIA
     Dosage: 600 MG, PER DAY
     Route: 048
     Dates: start: 20110620, end: 201206
  2. TASIGNA [Suspect]
     Dosage: 400 MG, BID
     Route: 048
     Dates: start: 201206, end: 20121109
  3. TASIGNA [Suspect]
     Dosage: 400 MG, PER DAY
     Route: 048
     Dates: start: 20130108

REACTIONS (6)
  - Hepatitis [Unknown]
  - Transaminases increased [Recovering/Resolving]
  - Blood lactate dehydrogenase increased [Recovering/Resolving]
  - Pruritus [Unknown]
  - Blood creatine phosphokinase increased [Recovering/Resolving]
  - Blood bilirubin increased [Unknown]
